FAERS Safety Report 7406820-3 (Version None)
Quarter: 2011Q2

REPORT INFORMATION
  Report Type: 
  Country: None (occurrence: None)
  Receive Date: 20110411
  Receipt Date: 20110406
  Transmission Date: 20111010
  Serious: Yes (Other)
  Sender: FDA-Public Use
  Company Number: US-PFIZER INC-2011076253

PATIENT
  Sex: Male
  Weight: 98 kg

DRUGS (1)
  1. CHANTIX [Suspect]
     Indication: SMOKING CESSATION THERAPY
     Dosage: UNK
     Route: 048
     Dates: start: 20100301, end: 20100101

REACTIONS (3)
  - CONFUSIONAL STATE [None]
  - AMNESIA [None]
  - DISTURBANCE IN ATTENTION [None]
